FAERS Safety Report 5840402-X (Version None)
Quarter: 2008Q3

REPORT INFORMATION
  Report Type: 
  Country: None (occurrence: None)
  Receive Date: 20080807
  Receipt Date: 20080731
  Transmission Date: 20090109
  Serious: Yes (Death)
  Sender: FDA-Public Use
  Company Number: OSCN-PR-0807S-0472

PATIENT
  Sex: Male

DRUGS (1)
  1. OMNISCAN [Suspect]
     Indication: DRUG USE FOR UNKNOWN INDICATION
     Dosage: SINGLE DOSE;
     Dates: start: 20050901, end: 20050901

REACTIONS (1)
  - NEPHROGENIC SYSTEMIC FIBROSIS [None]
